FAERS Safety Report 8608511-X (Version None)
Quarter: 2012Q3

REPORT INFORMATION
  Report Type: 
  Country: None (occurrence: None)
  Receive Date: 20120821
  Receipt Date: 20111025
  Transmission Date: 20120928
  Serious: Yes (Hospitalization, Other)
  Sender: FDA-Public Use
  Company Number: CO-PFIZER INC-2012202229

PATIENT
  Age: 80 Year
  Sex: Female

DRUGS (5)
  1. GLIBENCLAMIDE [Concomitant]
     Dosage: 5 MG, 2X/DAY
  2. LOSARTAN [Concomitant]
     Dosage: 50 MG, 1X/DAY
  3. METFORMIN [Concomitant]
     Dosage: 850 MG, 1X/DAY
  4. LIPITOR [Suspect]
     Indication: DYSLIPIDAEMIA
     Dosage: 10 MG, 1X/DAY
  5. ACETYLSALICYLIC ACID [Concomitant]
     Dosage: 100 MG, 1X/DAY

REACTIONS (4)
  - URINARY TRACT INFECTION [None]
  - PNEUMONIA [None]
  - INFLUENZA [None]
  - RENAL FAILURE CHRONIC [None]
